FAERS Safety Report 4533954-3 (Version None)
Quarter: 2004Q4

REPORT INFORMATION
  Report Type: 
  Country: None (occurrence: None)
  Receive Date: 20041221
  Receipt Date: 20041210
  Transmission Date: 20050328
  Serious: Yes (Other)
  Sender: FDA-Public Use
  Company Number: 000#8#2004-00781

PATIENT
  Age: 24 Year
  Sex: Female

DRUGS (6)
  1. GLYCERYL TRINITRATE, SOLUTION (GLYCERYL TRINITRATE) [Suspect]
     Indication: TOCOLYSIS
     Dosage: 1 MICROGRAM/KG/MIN
     Route: 041
  2. SEVOFLURANE [Suspect]
     Indication: GENERAL ANAESTHESIA
     Dosage: BETWEEN 1.8% AND 3.5% IN OXYGEN-AIR
     Route: 055
  3. THIOPENTAL SODIUM [Concomitant]
  4. FENTANYL [Concomitant]
  5. SUCCINYLCHOLINE CHLORIDE [Concomitant]
  6. VECURONIUM (VECURONIUM) [Concomitant]

REACTIONS (3)
  - DRUG EXPOSURE DURING PREGNANCY [None]
  - OPERATIVE HAEMORRHAGE [None]
  - PROCEDURAL HYPOTENSION [None]
